FAERS Safety Report 22725231 (Version 2)
Quarter: 2023Q4

REPORT INFORMATION
  Report Type: Report from Study
  Country: US (occurrence: US)
  Receive Date: 20230719
  Receipt Date: 20231204
  Transmission Date: 20240110
  Serious: Yes (Hospitalization)
  Sender: FDA-Public Use
  Company Number: US-TAKEDA-2023TUS010288

PATIENT
  Age: 45 Year
  Sex: Male
  Weight: 53 kg

DRUGS (4)
  1. PONATINIB [Suspect]
     Active Substance: PONATINIB
     Indication: Acute lymphocytic leukaemia
     Dosage: 30 MILLIGRAM, QD
     Route: 048
  2. PONATINIB [Suspect]
     Active Substance: PONATINIB
     Dosage: 30 MILLIGRAM, QOD
     Route: 065
  3. PONATINIB [Suspect]
     Active Substance: PONATINIB
     Dosage: 30 MILLIGRAM, QD
     Route: 048
  4. PONATINIB [Suspect]
     Active Substance: PONATINIB
     Dosage: 15 MILLIGRAM, QD
     Route: 048

REACTIONS (13)
  - Vision blurred [Recovered/Resolved]
  - Pruritus [Unknown]
  - Headache [Unknown]
  - Pain in extremity [Unknown]
  - Neck pain [Unknown]
  - Dizziness [Unknown]
  - Blood pressure increased [Unknown]
  - Rash [Unknown]
  - Asthenia [Unknown]
  - Tendon pain [Unknown]
  - Lung disorder [Unknown]
  - Cardiac disorder [Unknown]
  - Drug intolerance [Unknown]

NARRATIVE: CASE EVENT DATE: 20230629
